FAERS Safety Report 8878406 (Version 5)
Quarter: 2013Q4

REPORT INFORMATION
  Report Type: Report from Study
  Country: JP (occurrence: JP)
  Receive Date: 20121030
  Receipt Date: 20131127
  Transmission Date: 20140711
  Serious: Yes (Other)
  Sender: FDA-Public Use
  Company Number: JP-VERTEX PHARMACEUTICAL INC.-2012-023645

PATIENT
  Age: 63 Year
  Sex: Male

DRUGS (21)
  1. VX-950 (TELAPREVIR) [Suspect]
     Indication: CHRONIC HEPATITIS C
     Dosage: 1500 MG, QD
     Route: 048
     Dates: start: 20120903, end: 20120918
  2. VX-950 (TELAPREVIR) [Suspect]
     Dosage: 1000 MG, QD
     Route: 048
     Dates: start: 20120919, end: 20121009
  3. VX-950 (TELAPREVIR) [Suspect]
     Dosage: 1500 MG, QD
     Route: 048
     Dates: start: 20121010, end: 20121030
  4. VX-950 (TELAPREVIR) [Suspect]
     Dosage: 1000 MG, QD
     Route: 048
     Dates: start: 20121031, end: 20121127
  5. RIBAVIRIN [Suspect]
     Indication: CHRONIC HEPATITIS C
     Dosage: 600 MG, QD
     Route: 048
     Dates: start: 20120903, end: 20120909
  6. RIBAVIRIN [Suspect]
     Dosage: 800 MG, QD
     Route: 048
     Dates: start: 20120910, end: 20120925
  7. RIBAVIRIN [Suspect]
     Dosage: 400 MG, QD
     Route: 048
     Dates: start: 20120926, end: 20121030
  8. RIBAVIRIN [Suspect]
     Dosage: 300 MG, QD
     Route: 048
     Dates: start: 20121031, end: 20121106
  9. RIBAVIRIN [Suspect]
     Dosage: 200 MG, QD
     Route: 048
     Dates: start: 20121107, end: 20130108
  10. RIBAVIRIN [Suspect]
     Dosage: 400 MG, QD
     Route: 048
     Dates: start: 20130109, end: 20130710
  11. PEGINTRON [Suspect]
     Indication: CHRONIC HEPATITIS C
     Dosage: 1 ?G/KG, QW
     Route: 058
     Dates: start: 20120903, end: 20120916
  12. PEGINTRON [Suspect]
     Dosage: 0.7 ?G/KG, QW
     Route: 058
     Dates: start: 20120919, end: 20121002
  13. PEGINTRON [Suspect]
     Dosage: 1 ?G/KG, QW
     Route: 058
     Dates: start: 20121003, end: 20121009
  14. PEGINTRON [Suspect]
     Dosage: 1.4 ?G/KG, QW
     Route: 058
     Dates: start: 20121010, end: 20130227
  15. MYSLEE [Concomitant]
     Dosage: 10 MG, QD
     Route: 048
     Dates: start: 20121003, end: 20121113
  16. MYSLEE [Concomitant]
     Dosage: 10 MG, QD
     Route: 048
  17. LOXOPROFEN [Concomitant]
     Dosage: 60 MG, QD
     Route: 048
     Dates: start: 20120903, end: 20121016
  18. MUCOSTA [Concomitant]
     Dosage: 100 MG, QD
     Route: 048
     Dates: start: 20120903, end: 20121016
  19. URSO [Concomitant]
     Dosage: 600 MG, QD
     Route: 048
     Dates: start: 20121107
  20. RINDERON-A [Concomitant]
     Dosage: 2 GTT, QD
     Route: 047
     Dates: start: 20130109, end: 20130219
  21. ALLEGRA [Concomitant]
     Dosage: 120 MG, QD
     Route: 048
     Dates: start: 20130109

REACTIONS (3)
  - Haemorrhagic diathesis [Recovered/Resolved]
  - Neutrophil percentage decreased [Recovered/Resolved]
  - Platelet count decreased [Not Recovered/Not Resolved]
